FAERS Safety Report 25270174 (Version 1)
Quarter: 2025Q2

REPORT INFORMATION
  Report Type: Spontaneous
  Country: PL (occurrence: PL)
  Receive Date: 20250505
  Receipt Date: 20250505
  Transmission Date: 20250716
  Serious: Yes (Hospitalization, Other)
  Sender: BRISTOL-MYERS SQUIBB COMPANY
  Company Number: PL-002147023-NVSC2025PL066641

PATIENT
  Age: 72 Year
  Sex: Male

DRUGS (12)
  1. DASATINIB [Suspect]
     Active Substance: DASATINIB
     Indication: Product used for unknown indication
     Dosage: 100 MG, QD
  2. DASATINIB [Suspect]
     Active Substance: DASATINIB
  3. IMATINIB [Suspect]
     Active Substance: IMATINIB
     Indication: Product used for unknown indication
     Dosage: 400 MG, QD
     Dates: start: 202307, end: 202309
  4. IMATINIB [Suspect]
     Active Substance: IMATINIB
     Dates: start: 202310
  5. ENALAPRIL [Concomitant]
     Active Substance: ENALAPRIL
     Indication: Product used for unknown indication
  6. BISOPROLOL FUMARATE [Concomitant]
     Active Substance: BISOPROLOL FUMARATE
     Indication: Product used for unknown indication
  7. IPRES LONG [Concomitant]
     Indication: Product used for unknown indication
  8. FENOFIBRATE [Concomitant]
     Active Substance: FENOFIBRATE
     Indication: Product used for unknown indication
  9. SIMVACHOL [Concomitant]
     Indication: Product used for unknown indication
  10. FINASTER [Concomitant]
     Indication: Product used for unknown indication
  11. TAMSULOSIN HYDROCHLORIDE [Concomitant]
     Active Substance: TAMSULOSIN HYDROCHLORIDE
     Indication: Product used for unknown indication
  12. VINPOCETINE [Concomitant]
     Active Substance: VINPOCETINE
     Indication: Product used for unknown indication

REACTIONS (18)
  - Weight increased [Unknown]
  - Loss of consciousness [Unknown]
  - Renal impairment [Unknown]
  - Neutropenia [Unknown]
  - Atrioventricular block [Unknown]
  - Bronchitis viral [Unknown]
  - Candida infection [Unknown]
  - Cough [Recovering/Resolving]
  - Pneumonia [Unknown]
  - Leukopenia [Unknown]
  - Oedema [Recovered/Resolved]
  - Asthenia [Not Recovered/Not Resolved]
  - Laboratory test abnormal [Unknown]
  - Diarrhoea [Unknown]
  - Vomiting [Unknown]
  - Feeling abnormal [Recovering/Resolving]
  - Drug intolerance [Unknown]
  - Therapy non-responder [Unknown]

NARRATIVE: CASE EVENT DATE: 20230901
